FAERS Safety Report 9697890 (Version 1)
Quarter: 2013Q4

REPORT INFORMATION
  Report Type: Spontaneous
  Country: GB (occurrence: GB)
  Receive Date: 20131120
  Receipt Date: 20131120
  Transmission Date: 20140711
  Serious: Yes (Other)
  Sender: FDA-Public Use
  Company Number: GB-NOVOPROD-392390

PATIENT
  Age: 53 Year
  Sex: Female
  Weight: 101.6 kg

DRUGS (2)
  1. NOVOMIX 30 PENFILL [Suspect]
     Indication: DIABETES MELLITUS
     Dosage: 50 IU, BID
     Route: 051
  2. NOVOMIX 30 PENFILL [Suspect]
     Dosage: 50 IU, BID
     Route: 051

REACTIONS (8)
  - Paraesthesia [Not Recovered/Not Resolved]
  - Skin exfoliation [Not Recovered/Not Resolved]
  - Insomnia [Unknown]
  - Irritability [Not Recovered/Not Resolved]
  - Pain [Not Recovered/Not Resolved]
  - Fatigue [Not Recovered/Not Resolved]
  - Rash [Not Recovered/Not Resolved]
  - Pruritus [Not Recovered/Not Resolved]
